FAERS Safety Report 9383505 (Version 2)
Quarter: 2013Q3

REPORT INFORMATION
  Report Type: Spontaneous
  Country: PL (occurrence: PL)
  Receive Date: 20130704
  Receipt Date: 20130920
  Transmission Date: 20140515
  Serious: Yes (Other)
  Sender: FDA-Public Use
  Company Number: PL-AMGEN-POLSP2013046088

PATIENT
  Age: 77 Year
  Sex: Female

DRUGS (13)
  1. PROLIA [Suspect]
     Indication: OSTEOPOROSIS
     Dosage: 60 MG, UNK
     Route: 065
     Dates: start: 20111215
  2. PROFENID [Concomitant]
     Dosage: 50 MG, BID
     Dates: start: 20120725
  3. ADAMON                             /00599202/ [Concomitant]
     Dosage: 100 MG 2 X 1, BID
     Dates: start: 20130725
  4. ADAMON                             /00599202/ [Concomitant]
     Dosage: 100 MG, BID
     Dates: start: 20121109
  5. VIGANTOLETTEN [Concomitant]
     Dosage: 500 MG, QD
     Dates: start: 20120725
  6. CLEXANE [Concomitant]
     Dosage: 40 MG, 1 AMP, 20 DAYS, QD
     Dates: start: 20120910
  7. COXTRAL [Concomitant]
     Dosage: 500 MG, QD
     Dates: start: 20120910
  8. LIOTON [Concomitant]
     Dosage: 100 UNG, BID
     Dates: start: 20120910
  9. DICLOREUM [Concomitant]
     Dosage: 50 MG, BID
     Dates: start: 20120910
  10. NOLPAZA [Concomitant]
     Dosage: 20 MG, IN THE MORNING ON AN EMPTY STOMACH, UNK
     Dates: start: 20120910
  11. DUOMOX                             /00249601/ [Concomitant]
     Dosage: 500 MG, TID, 14 DAYS
     Dates: start: 20120919
  12. METYPRED                           /00049601/ [Concomitant]
     Dosage: 4 MG, QD
     Dates: start: 20121109
  13. NALGESIN                           /00044201/ [Concomitant]

REACTIONS (6)
  - Panniculitis [Recovered/Resolved]
  - Hyperaesthesia [Recovered/Resolved]
  - Feeling hot [Recovered/Resolved]
  - Oedema peripheral [Recovered/Resolved]
  - Pain in extremity [Recovered/Resolved]
  - Erythema [Recovered/Resolved]
